FAERS Safety Report 7760704-X (Version None)
Quarter: 2011Q3

REPORT INFORMATION
  Report Type: 
  Country: None (occurrence: None)
  Receive Date: 20110919
  Receipt Date: 20110914
  Transmission Date: 20111222
  Serious: Yes (Death, Hospitalization)
  Sender: FDA-Public Use
  Company Number: US-ASTRAZENECA-2011SE40808

PATIENT
  Age: 84 Year
  Sex: Male

DRUGS (2)
  1. SYMBICORT [Suspect]
     Route: 055
  2. LISINOPRIL [Suspect]
     Route: 048

REACTIONS (16)
  - RENAL FAILURE CHRONIC [None]
  - HYPOVOLAEMIA [None]
  - CHRONIC OBSTRUCTIVE PULMONARY DISEASE [None]
  - ASTHENIA [None]
  - ARTERIOSCLEROSIS [None]
  - HYPERTENSION [None]
  - MYOCARDIAL INFARCTION [None]
  - INFREQUENT BOWEL MOVEMENTS [None]
  - CARDIAC DISORDER [None]
  - EMPHYSEMA [None]
  - TACHYCARDIA [None]
  - MALAISE [None]
  - DYSPNOEA [None]
  - AORTIC ANEURYSM [None]
  - MYOCARDIAL ISCHAEMIA [None]
  - LOWER RESPIRATORY TRACT INFECTION [None]
